FAERS Safety Report 17031190 (Version 3)
Quarter: 2019Q4

REPORT INFORMATION
  Report Type: Spontaneous
  Country: US (occurrence: US)
  Receive Date: 20191114
  Receipt Date: 20191128
  Transmission Date: 20200122
  Serious: Yes (Other)
  Sender: FDA-Public Use
  Company Number: US-PFIZER INC-2019489196

PATIENT
  Age: 63 Year
  Sex: Male

DRUGS (2)
  1. CHANTIX [Suspect]
     Active Substance: VARENICLINE TARTRATE
     Indication: SMOKING CESSATION THERAPY
     Dosage: UNK
  2. CHANTIX [Suspect]
     Active Substance: VARENICLINE TARTRATE
     Dosage: 1 MG, DAILY

REACTIONS (7)
  - Coronary artery disease [Not Recovered/Not Resolved]
  - Product use issue [Unknown]
  - Fluid retention [Unknown]
  - Pulmonary oedema [Unknown]
  - Off label use [Unknown]
  - Respiratory disorder [Recovering/Resolving]
  - Cough [Unknown]
